FAERS Safety Report 9230019 (Version 1)
Quarter: 2013Q2

REPORT INFORMATION
  Report Type: Spontaneous
  Country: US (occurrence: US)
  Receive Date: 20130415
  Receipt Date: 20130415
  Transmission Date: 20140414
  Serious: No
  Sender: FDA-Public Use
  Company Number: US-JNJFOC-20130314147

PATIENT
  Age: 42 Year
  Sex: Female
  Weight: 56.7 kg

DRUGS (7)
  1. INVEGA SUSTENNA [Suspect]
     Indication: SCHIZOPHRENIFORM DISORDER
     Route: 030
     Dates: start: 20130306
  2. INVEGA SUSTENNA [Suspect]
     Indication: DELUSION
     Route: 030
     Dates: start: 20130306
  3. RISPERDAL [Concomitant]
     Route: 048
     Dates: start: 20130306
  4. PROZAC [Concomitant]
     Route: 048
     Dates: start: 20130306
  5. SEROQUEL [Concomitant]
     Route: 065
  6. ABILIFY [Concomitant]
     Route: 065
  7. LEXAPRO [Concomitant]
     Route: 065

REACTIONS (1)
  - Incorrect dose administered [Not Recovered/Not Resolved]
